FAERS Safety Report 15391406 (Version 1)
Quarter: 2018Q3

REPORT INFORMATION
  Report Type: Spontaneous
  Country: US (occurrence: US)
  Receive Date: 20180910
  Receipt Date: 20180910
  Transmission Date: 20181010
  Serious: Yes (Hospitalization)
  Sender: FDA-Public Use
  Company Number: None

PATIENT
  Sex: Female

DRUGS (8)
  1. PREDNSIONE [Concomitant]
  2. TACROLIMUS. [Concomitant]
     Active Substance: TACROLIMUS
  3. ASPIRIN. [Concomitant]
     Active Substance: ASPIRIN
  4. ZORTRESS [Concomitant]
     Active Substance: EVEROLIMUS
  5. MYFORTIC [Suspect]
     Active Substance: MYCOPHENOLATE SODIUM
     Indication: TRANSPLANT
     Route: 048
     Dates: start: 20180607
  6. FEXOFENADRINE [Concomitant]
  7. AZATHIOPRINE. [Concomitant]
     Active Substance: AZATHIOPRINE
  8. METFORMIN [Concomitant]
     Active Substance: METFORMIN HYDROCHLORIDE

REACTIONS (1)
  - Neutrophil count decreased [None]
